FAERS Safety Report 18324324 (Version 1)
Quarter: 2020Q3

REPORT INFORMATION
  Report Type: Spontaneous
  Country: US (occurrence: US)
  Receive Date: 20200928
  Receipt Date: 20200928
  Transmission Date: 20201103
  Serious: Yes (Death, Hospitalization, Other)
  Sender: FDA-Public Use
  Company Number: US-PURDUE-USA-2020-0167274

PATIENT
  Sex: Female

DRUGS (1)
  1. OXYCONTIN [Suspect]
     Active Substance: OXYCODONE HYDROCHLORIDE
     Indication: PRODUCT USED FOR UNKNOWN INDICATION
     Dosage: UNK
     Route: 048

REACTIONS (10)
  - Staphylococcal bacteraemia [Fatal]
  - Hospitalisation [Unknown]
  - Septic shock [Fatal]
  - Emotional distress [Unknown]
  - Cardiac operation [Unknown]
  - Pain [Unknown]
  - Drug dependence [Unknown]
  - Coma [Unknown]
  - Acute kidney injury [Unknown]
  - Drug abuse [Fatal]

NARRATIVE: CASE EVENT DATE: 2016
